FAERS Safety Report 10165992 (Version 5)
Quarter: 2014Q2

REPORT INFORMATION
  Report Type: Spontaneous
  Country: GB (occurrence: GB)
  Receive Date: 20140511
  Receipt Date: 20140607
  Transmission Date: 20141212
  Serious: Yes (Hospitalization, Other)
  Sender: FDA-Public Use
  Company Number: PHFR2014GB003028

PATIENT
  Age: 52 Year
  Sex: Male

DRUGS (5)
  1. CLOZARIL [Suspect]
     Indication: SCHIZOPHRENIA
     Dosage: UNK UKN, UNK
     Route: 048
     Dates: start: 20130927
  2. CLOZARIL [Suspect]
     Dosage: 425 MG, UNK
     Route: 048
     Dates: start: 20131001, end: 20140415
  3. SERTRALINE [Concomitant]
     Dosage: 200 MG, UNK
  4. VALPROATE [Concomitant]
     Dosage: 2 DF, BID
  5. LEVOTHYROXINE [Concomitant]
     Dosage: 100 UG, UNK

REACTIONS (7)
  - White blood cell count increased [Recovered/Resolved]
  - Differential white blood cell count abnormal [Recovered/Resolved]
  - Neutrophil count increased [Recovered/Resolved]
  - White blood cell count decreased [Recovered/Resolved]
  - Neutropenia [Recovered/Resolved]
  - Mental impairment [Not Recovered/Not Resolved]
  - Malaise [Not Recovered/Not Resolved]
